FAERS Safety Report 24036026 (Version 5)
Quarter: 2024Q4

REPORT INFORMATION
  Report Type: Spontaneous
  Country: AR (occurrence: AR)
  Receive Date: 20240701
  Receipt Date: 20241212
  Transmission Date: 20250115
  Serious: No
  Sender: PFIZER
  Company Number: AR-PFIZER INC-202400201549

PATIENT
  Age: 9 Year
  Sex: Male

DRUGS (1)
  1. GENOTROPIN [Suspect]
     Active Substance: SOMATROPIN
     Indication: Short stature
     Dosage: 0.4 MG TO 1 MG, 7 TIMES PER WEEK
     Dates: start: 20240624

REACTIONS (4)
  - Injection site haemorrhage [Not Recovered/Not Resolved]
  - Drug dose omission by device [Unknown]
  - Device delivery system issue [Unknown]
  - Needle issue [Unknown]

NARRATIVE: CASE EVENT DATE: 20240624
